FAERS Safety Report 9434982 (Version 2)
Quarter: 2013Q3

REPORT INFORMATION
  Report Type: Spontaneous
  Country: JP (occurrence: JP)
  Receive Date: 20130801
  Receipt Date: 20130812
  Transmission Date: 20140515
  Serious: Yes (Hospitalization, Other)
  Sender: FDA-Public Use
  Company Number: PHHY2013JP082213

PATIENT
  Sex: Female

DRUGS (3)
  1. FEMARA [Suspect]
     Indication: BREAST CANCER
     Dosage: 2.5 MG, DAILY
     Route: 048
     Dates: start: 20130308, end: 20130720
  2. AMLODIN [Suspect]
     Dosage: UNK
     Route: 048
  3. HERBESSER [Suspect]
     Dosage: UNK

REACTIONS (2)
  - Subdural haematoma [Recovered/Resolved]
  - Fall [Unknown]
